FAERS Safety Report 7266400-X (Version None)
Quarter: 2011Q1

REPORT INFORMATION
  Report Type: 
  Country: None (occurrence: None)
  Receive Date: 20110131
  Receipt Date: 20110125
  Transmission Date: 20110831
  Serious: Yes (Other)
  Sender: FDA-Public Use
  Company Number: AT-PFIZER INC-2011017199

PATIENT
  Age: 70 Year
  Sex: Female

DRUGS (4)
  1. XANOR [Suspect]
     Dosage: 2 MG, 1X/DAY
  2. LYRICA [Suspect]
     Indication: GENERALISED ANXIETY DISORDER
     Dosage: 25 MG, 1X/DAY
     Dates: start: 20100110
  3. MIRTAZAPINE [Concomitant]
     Dosage: 30 MG, DAILY
     Dates: end: 20100203
  4. ZOLPIDEM TARTRATE [Concomitant]
     Dosage: 10 MG, 1X/DAY
     Dates: end: 20100203

REACTIONS (4)
  - FATIGUE [None]
  - ACCOMMODATION DISORDER [None]
  - SOMNOLENCE [None]
  - VERTIGO [None]
